FAERS Safety Report 9882318 (Version 2)
Quarter: 2015Q1

REPORT INFORMATION
  Report Type: Spontaneous
  Country: US (occurrence: US)
  Receive Date: 20140207
  Receipt Date: 20150218
  Transmission Date: 20150721
  Serious: Yes (Hospitalization, Other)
  Sender: FDA-Public Use
  Company Number: US-GLAXOSMITHKLINE-A1059039A

PATIENT
  Age: 69 Year
  Sex: Male

DRUGS (5)
  1. ADVAIR HFA [Suspect]
     Active Substance: FLUTICASONE PROPIONATE\SALMETEROL XINAFOATE
     Indication: ASTHMA
     Dosage: 1 PUFF(S), BID
     Route: 065
     Dates: start: 2009
  2. VENTOLIN [Suspect]
     Active Substance: ALBUTEROL SULFATE
     Indication: PULMONARY CONGESTION
     Dosage: 2 DF, BID
     Route: 055
  3. ZINOSTATIN. [Concomitant]
     Active Substance: ZINOSTATIN
  4. HYDROCHLOROTHIAZIDE. [Concomitant]
     Active Substance: HYDROCHLOROTHIAZIDE
  5. LISINOPRIL. [Concomitant]
     Active Substance: LISINOPRIL

REACTIONS (5)
  - Productive cough [Unknown]
  - Secretion discharge [Unknown]
  - Aspergillus infection [Not Recovered/Not Resolved]
  - Bronchiectasis [Not Recovered/Not Resolved]
  - Pulmonary mycosis [Unknown]

NARRATIVE: CASE EVENT DATE: 201306
